FAERS Safety Report 8237880-8 (Version None)
Quarter: 2012Q1

REPORT INFORMATION
  Report Type: 
  Country: None (occurrence: None)
  Receive Date: 20120327
  Receipt Date: 20120322
  Transmission Date: 20120608
  Serious: Yes (Hospitalization)
  Sender: FDA-Public Use
  Company Number: US-BAYER-2012-028770

PATIENT
  Age: 26 Year
  Sex: Female

DRUGS (5)
  1. TOPAMAX [Concomitant]
     Dosage: 25 MG, UNK
  2. SYNTHROID [Concomitant]
  3. YAZ [Suspect]
     Dosage: UNK
     Dates: start: 20080421, end: 20090825
  4. OXYCODONE HCL AND ACETAMINOPHEN [Concomitant]
     Dosage: 5 MG, UNK
  5. VITAMIN D [Concomitant]
     Dosage: 50000 IU, UNK

REACTIONS (4)
  - PULMONARY EMBOLISM [None]
  - DEEP VEIN THROMBOSIS [None]
  - PAIN IN EXTREMITY [None]
  - OEDEMA PERIPHERAL [None]
